FAERS Safety Report 6595594-4 (Version None)
Quarter: 2010Q1

REPORT INFORMATION
  Report Type: 
  Country: None (occurrence: None)
  Receive Date: 20100223
  Receipt Date: 20100105
  Transmission Date: 20100710
  Serious: Yes (Death)
  Sender: FDA-Public Use
  Company Number: US-TYCO HEALTHCARE/MALLINCKRODT-T201000368

PATIENT
  Age: 50 Year
  Sex: Female

DRUGS (8)
  1. PROPOXYPHENE HCL AND ACETAMINOPHEN [Suspect]
     Route: 048
  2. MORPHINE [Suspect]
     Route: 048
  3. ACETAMINOPHEN AND HYDROCODONE BITARTRATE [Suspect]
     Route: 048
  4. HYDROMORPHONE HYDROCHLORIDE [Suspect]
     Route: 048
  5. SERTRALINE HCL [Suspect]
     Route: 048
  6. MEPROBAMATE [Suspect]
     Route: 048
  7. ALPRAZOLAM [Suspect]
     Route: 048
  8. DIPHENHYDRAMINE [Suspect]
     Route: 048

REACTIONS (1)
  - CARDIO-RESPIRATORY ARREST [None]
